FAERS Safety Report 13426238 (Version 1)
Quarter: 2017Q2

REPORT INFORMATION
  Report Type: Spontaneous
  Country: US (occurrence: US)
  Receive Date: 20170411
  Receipt Date: 20170411
  Transmission Date: 20170830
  Serious: No
  Sender: FDA-Public Use
  Company Number: US-JNJFOC-20170125191

PATIENT
  Age: 73 Year
  Sex: Female
  Weight: 43.5 kg

DRUGS (1)
  1. REMICADE [Suspect]
     Active Substance: INFLIXIMAB
     Indication: CROHN^S DISEASE
     Route: 042
     Dates: start: 20170125

REACTIONS (2)
  - Vascular access complication [Recovered/Resolved]
  - Vein collapse [Not Recovered/Not Resolved]

NARRATIVE: CASE EVENT DATE: 201701
